FAERS Safety Report 16950052 (Version 2)
Quarter: 2019Q4

REPORT INFORMATION
  Report Type: Spontaneous
  Country: US (occurrence: US)
  Receive Date: 20191023
  Receipt Date: 20191204
  Transmission Date: 20200122
  Serious: Yes (Other)
  Sender: FDA-Public Use
  Company Number: US-TEVA-2019-US-1127331

PATIENT
  Age: 41 Year
  Sex: Female
  Weight: 73 kg

DRUGS (7)
  1. AJOVY [Suspect]
     Active Substance: FREMANEZUMAB-VFRM
     Dates: start: 20191008, end: 20191009
  2. BUSPAR [Concomitant]
     Active Substance: BUSPIRONE HYDROCHLORIDE
     Indication: SEIZURE
     Route: 065
  3. LAMICTAL [Concomitant]
     Active Substance: LAMOTRIGINE
     Indication: SEIZURE
     Route: 065
  4. AIMOVIG [Suspect]
     Active Substance: ERENUMAB-AOOE
     Route: 065
     Dates: start: 20190816, end: 20190817
  5. PROPRANOLOL [Concomitant]
     Active Substance: PROPRANOLOL HYDROCHLORIDE
     Indication: SEIZURE
     Route: 065
     Dates: start: 2019
  6. GABAPENTIN. [Concomitant]
     Active Substance: GABAPENTIN
     Indication: SEIZURE
     Route: 065
  7. TOPIMAX [Concomitant]
     Indication: SEIZURE
     Route: 065

REACTIONS (1)
  - Seizure [Recovered/Resolved]

NARRATIVE: CASE EVENT DATE: 20191008
